FAERS Safety Report 14653329 (Version 3)
Quarter: 2018Q3

REPORT INFORMATION
  Report Type: Spontaneous
  Country: TR (occurrence: TR)
  Receive Date: 20180319
  Receipt Date: 20180724
  Transmission Date: 20181010
  Serious: Yes (Death, Life-Threatening, Hospitalization)
  Sender: FDA-Public Use
  Company Number: TR-CONCORDIA PHARMACEUTICALS INC.-E2B_00010551

PATIENT
  Age: 46 Year
  Sex: Female

DRUGS (3)
  1. CYCLOPHOSPHAMIDE. [Concomitant]
     Active Substance: CYCLOPHOSPHAMIDE
     Indication: HAEMATOLOGICAL MALIGNANCY
     Dosage: 500 MG/DAY (WEEKLY DOSE)
     Route: 042
  2. PREDNISOLONE. [Suspect]
     Active Substance: PREDNISOLONE
     Indication: HAEMATOLOGICAL MALIGNANCY
     Dosage: 1 MG/KG/DAY
     Route: 042
  3. PREDNISOLONE. [Suspect]
     Active Substance: PREDNISOLONE
     Dosage: TAPERED DOSE.

REACTIONS (2)
  - Abdominal abscess [Unknown]
  - Sepsis [Fatal]
